FAERS Safety Report 17973029 (Version 1)
Quarter: 2020Q3

REPORT INFORMATION
  Report Type: Spontaneous
  Country: US (occurrence: US)
  Receive Date: 20200701
  Receipt Date: 20200701
  Transmission Date: 20201103
  Serious: Yes (Death)
  Sender: FDA-Public Use
  Company Number: None

PATIENT
  Age: 63 Year
  Sex: Male

DRUGS (8)
  1. HYOSCYAMINE TAB 0.125MG [Concomitant]
     Active Substance: HYOSCYAMINE
     Dates: start: 20200507, end: 20200701
  2. PROCHLORPER TAB 10MG [Concomitant]
     Dates: start: 20200505, end: 20200701
  3. VOTRIENT [Suspect]
     Active Substance: PAZOPANIB HYDROCHLORIDE
     Indication: MALIGNANT CONNECTIVE TISSUE NEOPLASM
     Route: 048
     Dates: start: 20200131, end: 20200421
  4. SANTYL OIN 250/GM [Concomitant]
     Dates: start: 20200522, end: 20200701
  5. AMLODIPINE TAB 5MG [Concomitant]
     Dates: start: 20200216, end: 20200701
  6. ONDANSETRON TAB 8MG ODT [Concomitant]
     Dates: start: 20200602, end: 20200701
  7. LINZESS CAP 145MCG [Concomitant]
     Dates: start: 20200526, end: 20200701
  8. SPIRONOLACT TAB 25MG [Concomitant]
     Dates: start: 20200216, end: 20200701

REACTIONS (1)
  - Death [None]

NARRATIVE: CASE EVENT DATE: 20200701
